FAERS Safety Report 6387261-7 (Version None)
Quarter: 2009Q4

REPORT INFORMATION
  Report Type: 
  Country: None (occurrence: None)
  Receive Date: 20091002
  Receipt Date: 20090922
  Transmission Date: 20100525
  Serious: Yes (Other)
  Sender: FDA-Public Use
  Company Number: FR-AMGEN-US366542

PATIENT
  Age: 60 Year
  Sex: Female

DRUGS (2)
  1. ENBREL [Suspect]
     Indication: PSORIASIS
     Route: 058
     Dates: start: 20090901
  2. UNSPECIFIED RADIATION THERAPY [Suspect]
     Dates: start: 20090801

REACTIONS (2)
  - RADIATION INTERACTION [None]
  - RADIATION SKIN INJURY [None]
